FAERS Safety Report 5441238-4 (Version None)
Quarter: 2007Q3

REPORT INFORMATION
  Report Type: 
  Country: None (occurrence: None)
  Receive Date: 20070901
  Receipt Date: 20070822
  Transmission Date: 20080115
  Serious: Yes (Hospitalization)
  Sender: FDA-Public Use
  Company Number: GB-PFIZER INC-2007070865

PATIENT
  Age: 32 Year
  Sex: Female

DRUGS (3)
  1. CHAMPIX [Suspect]
     Route: 048
  2. STATINS [Concomitant]
  3. INSULIN [Concomitant]
     Indication: DIABETES MELLITUS

REACTIONS (3)
  - ARTERIOGRAM CORONARY ABNORMAL [None]
  - CARDIAC ARREST [None]
  - LEFT VENTRICULAR DYSFUNCTION [None]
